FAERS Safety Report 9569842 (Version 1)
Quarter: 2013Q3

REPORT INFORMATION
  Report Type: Spontaneous
  Country: US (occurrence: US)
  Receive Date: 20130930
  Receipt Date: 20130930
  Transmission Date: 20140515
  Serious: No
  Sender: FDA-Public Use
  Company Number: US-AMGEN-USASP2013065449

PATIENT
  Age: 65 Year
  Sex: Female
  Weight: 59.41 kg

DRUGS (6)
  1. ENBREL [Suspect]
     Indication: PRODUCT USED FOR UNKNOWN INDICATION
     Dosage: 50 MG, QWK
     Route: 058
  2. VOLTAREN                           /00372301/ [Concomitant]
     Dosage: 75 MG, UNK
  3. FOLIC ACID [Concomitant]
  4. METHOTREXATE [Concomitant]
     Dosage: 2.5 MG, UNK
  5. MULTIVITAMINS, PLAIN [Concomitant]
     Dosage: UNK
  6. CALCIUM 500+D [Concomitant]
     Dosage: 500 UNK, UNK

REACTIONS (3)
  - Vertigo [Unknown]
  - Localised infection [Unknown]
  - Injection site pruritus [Unknown]
